FAERS Safety Report 7691122-0 (Version None)
Quarter: 2011Q3

REPORT INFORMATION
  Report Type: 
  Country: None (occurrence: None)
  Receive Date: 20110818
  Receipt Date: 20110816
  Transmission Date: 20111222
  Serious: Yes (Hospitalization, Other)
  Sender: FDA-Public Use
  Company Number: PE-PFIZER INC-2011171037

PATIENT
  Sex: Female

DRUGS (4)
  1. DIGOXIN [Concomitant]
     Dosage: UNK
     Route: 048
  2. PROPRANOLOL [Concomitant]
     Dosage: UNK
     Route: 048
  3. SUTENT [Suspect]
     Indication: RENAL CANCER METASTATIC
     Dosage: UNK
     Route: 048
     Dates: start: 20100401
  4. OMEPRAZOLE [Concomitant]
     Indication: PROPHYLAXIS AGAINST GASTROINTESTINAL ULCER
     Dosage: UNK
     Route: 048

REACTIONS (7)
  - DYSPNOEA [None]
  - PLATELET COUNT DECREASED [None]
  - MUCOSAL INFLAMMATION [None]
  - JAUNDICE [None]
  - CARDIAC FAILURE [None]
  - PNEUMONIA [None]
  - LIPIDS INCREASED [None]
